FAERS Safety Report 5926445-6 (Version None)
Quarter: 2008Q4

REPORT INFORMATION
  Report Type: 
  Country: None (occurrence: None)
  Receive Date: 20081014
  Receipt Date: 20081003
  Transmission Date: 20090506
  Serious: Yes (Disabling)
  Sender: FDA-Public Use
  Company Number: 200814142

PATIENT
  Sex: Female

DRUGS (1)
  1. SANDOGLOBULIN [Suspect]
     Indication: MYASTHENIC SYNDROME
     Dosage: 20 G DAILY IV
     Route: 042
     Dates: start: 20080823, end: 20080825

REACTIONS (2)
  - NO THERAPEUTIC RESPONSE [None]
  - VERTIGO [None]
